FAERS Safety Report 5853570-0 (Version None)
Quarter: 2008Q3

REPORT INFORMATION
  Report Type: 
  Country: None (occurrence: None)
  Receive Date: 20080822
  Receipt Date: 20080820
  Transmission Date: 20090109
  Serious: Yes (Hospitalization)
  Sender: FDA-Public Use
  Company Number: FR-BRISTOL-MYERS SQUIBB COMPANY-14308761

PATIENT
  Age: 81 Year
  Sex: Male

DRUGS (8)
  1. ELISOR TABS 20 MG [Suspect]
     Indication: PROPHYLAXIS
     Dosage: 2 DOSAGE FORM = 2 TABLETS.
     Route: 048
  2. GLUCOPHAGE [Suspect]
     Indication: TYPE 2 DIABETES MELLITUS
     Dosage: 3 DOSAGE FORM = 3 TABLETS.
     Route: 048
     Dates: start: 20080626, end: 20080626
  3. URBANYL [Suspect]
     Indication: ANXIETY
     Dosage: 1 DOSAGE FORM = 1 TABLET.  STRENGTH 10 MG
     Route: 048
     Dates: start: 20080530, end: 20080623
  4. NOROXIN [Suspect]
     Indication: URINARY TRACT INFECTION
     Dosage: FORMULATION: TABLET
     Route: 048
     Dates: start: 20080528, end: 20080628
  5. CORDARONE [Suspect]
     Indication: ATRIAL FIBRILLATION
     Dosage: STRENGTH 200 MG, 1 DOSAGE FORM = HALF-TABLET.
     Route: 048
  6. KEPPRA [Suspect]
     Indication: EPILEPSY
     Dosage: 2 DOSAGE FORM = 2 TABLETS, STRENGTH 250 MG
     Route: 048
     Dates: start: 20080530
  7. MOPRAL [Suspect]
     Indication: GASTRIC ULCER
     Dosage: 1 DOSAGE FORM= 1 TABLET, STRENGTH 20 MG
     Route: 048
  8. KARDEGIC [Suspect]
     Indication: PROPHYLAXIS
     Dosage: 1 DOSAGE FORM = I PACKET, STRENGTH 75 MG.
     Route: 048

REACTIONS (3)
  - ABNORMAL BEHAVIOUR [None]
  - CONDITION AGGRAVATED [None]
  - GENERAL PHYSICAL HEALTH DETERIORATION [None]
